FAERS Safety Report 5812487-8 (Version None)
Quarter: 2008Q3

REPORT INFORMATION
  Report Type: 
  Country: None (occurrence: None)
  Receive Date: 20080711
  Receipt Date: 20080630
  Transmission Date: 20090109
  Serious: Yes (Disabling)
  Sender: FDA-Public Use
  Company Number: OSCN-NO-0604S-0096

PATIENT
  Age: 30 Year
  Sex: Male

DRUGS (1)
  1. OMNISCAN [Suspect]
     Indication: RENAL TRANSPLANT
     Dosage: 50 ML, SINGLE DOSE, I.V.
     Route: 042
     Dates: start: 20031002, end: 20031002

REACTIONS (4)
  - ECZEMA [None]
  - EYE DISORDER [None]
  - NEPHROGENIC SYSTEMIC FIBROSIS [None]
  - SKIN EXFOLIATION [None]
